FAERS Safety Report 19500798 (Version 1)
Quarter: 2021Q3

REPORT INFORMATION
  Report Type: Spontaneous
  Country: None (occurrence: US)
  Receive Date: 20210707
  Receipt Date: 20210707
  Transmission Date: 20211014
  Serious: Yes (Other)
  Sender: FDA-Public Use
  Company Number: US-GLAXOSMITHKLINE-US2021GSK144295

PATIENT
  Sex: Male

DRUGS (10)
  1. ZANTAC [Suspect]
     Active Substance: RANITIDINE HYDROCHLORIDE
     Indication: GASTRITIS EROSIVE
     Dosage: 150 MG BOTH
     Route: 065
     Dates: start: 201601, end: 201907
  2. ZANTAC [Suspect]
     Active Substance: RANITIDINE HYDROCHLORIDE
     Dosage: 300 MG, QD
     Route: 065
     Dates: start: 201601, end: 201907
  3. RANITIDINE. [Suspect]
     Active Substance: RANITIDINE
     Indication: GASTRITIS EROSIVE
     Dosage: 300 MG, QD
     Route: 065
     Dates: start: 201601, end: 202007
  4. ZANTAC [Suspect]
     Active Substance: RANITIDINE HYDROCHLORIDE
     Dosage: 300 MG, QD
     Route: 065
     Dates: start: 201601, end: 201907
  5. RANITIDINE CAPSULE [Suspect]
     Active Substance: RANITIDINE
     Indication: GASTRITIS EROSIVE
     Dosage: 150 MG BOTH
     Route: 065
     Dates: start: 201601, end: 201907
  6. RANITIDINE CAPSULE [Suspect]
     Active Substance: RANITIDINE
     Dosage: 300 MG, QD
     Route: 065
     Dates: start: 201601, end: 201907
  7. RANITIDINE. [Suspect]
     Active Substance: RANITIDINE
     Indication: GASTRITIS EROSIVE
     Dosage: 150 MG PRESCRIPTION
     Route: 065
     Dates: start: 201601, end: 202007
  8. RANITIDINE. [Suspect]
     Active Substance: RANITIDINE
     Dosage: 300 MG, QD
     Route: 065
     Dates: start: 201601, end: 202007
  9. RANITIDINE. [Suspect]
     Active Substance: RANITIDINE
     Indication: GASTRITIS EROSIVE
     Dosage: UNK
  10. ZANTAC [Suspect]
     Active Substance: RANITIDINE HYDROCHLORIDE
     Indication: GASTRITIS EROSIVE
     Dosage: 150 MG BOTH
     Route: 065
     Dates: start: 201601, end: 201907

REACTIONS (1)
  - Hepatic cancer [Unknown]
